FAERS Safety Report 12736045 (Version 1)
Quarter: 2016Q3

REPORT INFORMATION
  Report Type: Report from Study
  Country: US (occurrence: US)
  Receive Date: 20160913
  Receipt Date: 20160913
  Transmission Date: 20161109
  Serious: No
  Sender: FDA-Public Use
  Company Number: US-ALEXION PHARMACEUTICALS INC.-A201606645

PATIENT
  Sex: Male

DRUGS (1)
  1. SOLIRIS [Suspect]
     Active Substance: ECULIZUMAB
     Indication: PAROXYSMAL NOCTURNAL HAEMOGLOBINURIA
     Dosage: 900 MG, Q2W
     Route: 042
     Dates: end: 20160901

REACTIONS (4)
  - Oropharyngeal pain [Unknown]
  - Viral infection [Not Recovered/Not Resolved]
  - Haemoglobinuria [Unknown]
  - Cough [Unknown]

NARRATIVE: CASE EVENT DATE: 20160829
